FAERS Safety Report 6877587-2 (Version None)
Quarter: 2010Q3

REPORT INFORMATION
  Report Type: 
  Country: None (occurrence: None)
  Receive Date: 20100727
  Receipt Date: 20100317
  Transmission Date: 20110219
  Serious: No
  Sender: FDA-Public Use
  Company Number: US-ABBOTT-10P-163-0633584-00

PATIENT
  Sex: Female
  Weight: 57.204 kg

DRUGS (1)
  1. SYNTHROID [Suspect]
     Indication: BASEDOW'S DISEASE
     Dates: start: 19970101, end: 20080901

REACTIONS (15)
  - ALOPECIA [None]
  - ANGINA PECTORIS [None]
  - ARTHRALGIA [None]
  - BONE PAIN [None]
  - CARPAL TUNNEL SYNDROME [None]
  - DEPRESSION [None]
  - DRY SKIN [None]
  - GASTROINTESTINAL DISORDER [None]
  - HYPERTENSION [None]
  - IMPAIRED WORK ABILITY [None]
  - INSOMNIA [None]
  - MENTAL IMPAIRMENT [None]
  - NAIL DISORDER [None]
  - NEPHROLITHIASIS [None]
  - ONYCHOCLASIS [None]
